FAERS Safety Report 16393318 (Version 1)
Quarter: 2019Q2

REPORT INFORMATION
  Report Type: Spontaneous
  Country: US (occurrence: US)
  Receive Date: 20190605
  Receipt Date: 20190605
  Transmission Date: 20190711
  Serious: No
  Sender: FDA-Public Use
  Company Number: US-ALLERGAN-1900374US

PATIENT

DRUGS (4)
  1. PRENATAL VITAMINS [Concomitant]
     Active Substance: VITAMINS
     Route: 064
  2. PROGESTERONE UNK [Suspect]
     Active Substance: PROGESTERONE
     Indication: MATERNAL EXPOSURE TIMING UNSPECIFIED
     Route: 064
  3. DIPHENHYDRAMINE. [Concomitant]
     Active Substance: DIPHENHYDRAMINE
     Route: 064
  4. PREDNISONE. [Concomitant]
     Active Substance: PREDNISONE
     Route: 064

REACTIONS (2)
  - Premature baby [Unknown]
  - Nonreassuring foetal heart rate pattern [Unknown]
